FAERS Safety Report 14747067 (Version 1)
Quarter: 2018Q2

REPORT INFORMATION
  Report Type: Spontaneous
  Country: US (occurrence: US)
  Receive Date: 20180405
  Receipt Date: 20180405
  Transmission Date: 20180711
  Serious: No
  Sender: FDA-Public Use
  Company Number: None

PATIENT
  Age: 73 Year
  Weight: 117 kg

DRUGS (16)
  1. SPIRIVA [Concomitant]
     Active Substance: TIOTROPIUM BROMIDE MONOHYDRATE
  2. ASTELIN [Concomitant]
     Active Substance: AZELASTINE HYDROCHLORIDE
  3. NASACORT [Concomitant]
     Active Substance: TRIAMCINOLONE ACETONIDE
  4. INSULIN [Concomitant]
     Active Substance: INSULIN NOS
  5. VIT.D [Concomitant]
  6. BYSTOLIC [Concomitant]
     Active Substance: NEBIVOLOL HYDROCHLORIDE
  7. GLEMIPRIDE [Concomitant]
  8. CELEBREX [Concomitant]
     Active Substance: CELECOXIB
  9. PREVACID [Concomitant]
     Active Substance: LANSOPRAZOLE
  10. ATORVASTATIN 40MG [Suspect]
     Active Substance: ATORVASTATIN
     Indication: HYPERCHOLESTEROLAEMIA
     Dosage: ?          QUANTITY:1 TABLET(S);?ALL LOTS OVER 3?
     Route: 048
  11. BREO ELLIPTA [Concomitant]
     Active Substance: FLUTICASONE FUROATE\VILANTEROL TRIFENATATE
  12. SALMON CALCITONIN [Concomitant]
  13. CALCIUM CITRATE [Concomitant]
     Active Substance: CALCIUM CITRATE
  14. ASA [Concomitant]
     Active Substance: ASPIRIN
  15. MUCINEX [Concomitant]
     Active Substance: GUAIFENESIN
  16. VALSARTAN/HCT [Concomitant]
     Active Substance: HYDROCHLOROTHIAZIDE\VALSARTAN

REACTIONS (4)
  - Drug hypersensitivity [None]
  - Urticaria [None]
  - Product substitution issue [None]
  - Angioedema [None]

NARRATIVE: CASE EVENT DATE: 20141001
